FAERS Safety Report 5845113-2 (Version None)
Quarter: 2008Q3

REPORT INFORMATION
  Report Type: 
  Country: None (occurrence: None)
  Receive Date: 20080814
  Receipt Date: 20080813
  Transmission Date: 20090109
  Serious: Yes (Hospitalization)
  Sender: FDA-Public Use
  Company Number: A0742317A

PATIENT
  Age: 58 Year
  Sex: Female

DRUGS (10)
  1. ALLI [Suspect]
     Indication: WEIGHT LOSS DIET
     Route: 048
     Dates: start: 20080707, end: 20080718
  2. ENBREL [Concomitant]
     Indication: PSORIASIS
     Dates: start: 20050317
  3. ACEON [Concomitant]
  4. NORVASC [Concomitant]
  5. HYDROCHLOROTHIAZIDE [Concomitant]
  6. POTASSIUM CHLORIDE [Concomitant]
  7. WOMENS MULTIVITAMIN [Concomitant]
  8. ASPIRIN [Concomitant]
  9. FISH OIL [Concomitant]
  10. FLAX OIL [Concomitant]

REACTIONS (11)
  - BACK PAIN [None]
  - BILIARY DYSKINESIA [None]
  - CHOLECYSTITIS [None]
  - FLATULENCE [None]
  - GALLBLADDER CHOLESTEROLOSIS [None]
  - GALLBLADDER DISORDER [None]
  - HEPATIC ENZYME INCREASED [None]
  - NAUSEA [None]
  - NECK PAIN [None]
  - PROCEDURAL PAIN [None]
  - SPINAL DEFORMITY [None]
